FAERS Safety Report 7100147-5 (Version None)
Quarter: 2010Q4

REPORT INFORMATION
  Report Type: 
  Country: None (occurrence: None)
  Receive Date: 20101112
  Receipt Date: 20100524
  Transmission Date: 20110411
  Serious: No
  Sender: FDA-Public Use
  Company Number: A0861032A

PATIENT
  Age: 85 Year
  Sex: Female

DRUGS (7)
  1. COREG [Suspect]
     Indication: HYPERTENSION
     Dosage: 12.5MG TWICE PER DAY
     Route: 048
     Dates: start: 20100416, end: 20100430
  2. ASPIRIN [Concomitant]
  3. PLAVIX [Concomitant]
  4. ISOSORBIDE DINITRATE [Concomitant]
  5. BENICAR [Concomitant]
  6. LOPRESSOR [Concomitant]
  7. PRAVASTATIN [Concomitant]

REACTIONS (2)
  - ABDOMINAL DISTENSION [None]
  - BONE PAIN [None]
